FAERS Safety Report 11570240 (Version 3)
Quarter: 2015Q4

REPORT INFORMATION
  Report Type: Spontaneous
  Country: US (occurrence: US)
  Receive Date: 20150916
  Receipt Date: 20151104
  Transmission Date: 20160304
  Serious: No
  Sender: FDA-Public Use
  Company Number: US-ELI_LILLY_AND_COMPANY-US200909000322

PATIENT
  Age: 73 Year
  Sex: Female

DRUGS (11)
  1. FORTEO [Suspect]
     Active Substance: TERIPARATIDE
     Dosage: 20 UG, DAILY (1/D)
     Route: 065
  2. SIMVASTIN [Concomitant]
     Active Substance: SIMVASTATIN
     Dosage: 10 MG, DAILY (1/D)
  3. FORTEO [Suspect]
     Active Substance: TERIPARATIDE
     Indication: OSTEOPOROSIS
     Dosage: 20 UG, DAILY (1/D)
     Route: 065
     Dates: start: 20090520, end: 2009
  4. CALCIUM [Concomitant]
     Active Substance: CALCIUM
     Dosage: 1800 MG, DAILY (1/D)
  5. VITAMIN D3 [Concomitant]
     Active Substance: CHOLECALCIFEROL
     Dosage: 2000 IU, UNK
     Route: 048
  6. FORTEO [Suspect]
     Active Substance: TERIPARATIDE
     Dosage: 20 UG, DAILY (1/D)
     Route: 065
     Dates: start: 2009
  7. FORTEO [Suspect]
     Active Substance: TERIPARATIDE
     Dosage: 20 UG, DAILY (1/D)
     Route: 065
  8. CYMBALTA [Concomitant]
     Active Substance: DULOXETINE HYDROCHLORIDE
     Dosage: 30 UG, DAILY (1/D)
  9. CENTRUM [Concomitant]
     Active Substance: VITAMINS
     Dosage: 1 D/F, DAILY (1/D)
  10. AXID [Concomitant]
     Active Substance: NIZATIDINE
     Dosage: 10 MG, AS NEEDED
  11. BABY ASPIRIN [Concomitant]
     Active Substance: ASPIRIN

REACTIONS (7)
  - Haematoma [Unknown]
  - Nausea [Unknown]
  - Fall [Unknown]
  - Red blood cell sedimentation rate increased [Unknown]
  - Injection site bruising [Recovered/Resolved]
  - Injection site bruising [Unknown]
  - Dizziness [Unknown]

NARRATIVE: CASE EVENT DATE: 2009
